FAERS Safety Report 5016514-X (Version None)
Quarter: 2006Q2

REPORT INFORMATION
  Report Type: 
  Country: None (occurrence: None)
  Receive Date: 20060602
  Receipt Date: 20060524
  Transmission Date: 20061013
  Serious: Yes (Hospitalization)
  Sender: FDA-Public Use
  Company Number: ES-AVENTIS-200612970EU

PATIENT
  Age: 70 Year
  Sex: Female

DRUGS (2)
  1. TERTENSIF - SLOW RELEASE [Suspect]
     Indication: HYPERTENSION
     Route: 048
     Dates: end: 20051001
  2. QUINAPRIL [Suspect]
     Indication: HYPERTENSION
     Route: 048
     Dates: end: 20051001

REACTIONS (4)
  - HEADACHE [None]
  - HYPONATRAEMIA [None]
  - NAUSEA [None]
  - SOMNOLENCE [None]
